FAERS Safety Report 7170847-X (Version None)
Quarter: 2010Q4

REPORT INFORMATION
  Report Type: 
  Country: None (occurrence: None)
  Receive Date: 20101217
  Receipt Date: 20101207
  Transmission Date: 20110411
  Serious: Yes (Hospitalization, Other)
  Sender: FDA-Public Use
  Company Number: PHHY2010FR83687

PATIENT
  Sex: Male

DRUGS (4)
  1. RASILEZ HCT [Suspect]
     Indication: HYPERTENSION
     Route: 048
  2. ANTIHYPERTENSIVE DRUGS [Concomitant]
  3. ANTICOAGULANTS [Concomitant]
  4. ANTIARRHYTHMICS, CLASS I AND III [Concomitant]

REACTIONS (8)
  - CREATININE RENAL CLEARANCE DECREASED [None]
  - DIARRHOEA [None]
  - EOSINOPHILIA [None]
  - FATIGUE [None]
  - GASTROENTERITIS [None]
  - HYPERLIPASAEMIA [None]
  - PANCREATITIS ACUTE [None]
  - RENAL FAILURE ACUTE [None]
